FAERS Safety Report 8827378 (Version 1)
Quarter: 2012Q4

REPORT INFORMATION
  Report Type: 
  Country: US (occurrence: US)
  Receive Date: 20121005
  Receipt Date: 20121005
  Transmission Date: 20130627
  Serious: No
  Sender: FDA-Public Use
  Company Number: US-BRISTOL-MYERS SQUIBB COMPANY-16332264

PATIENT
  Age: 80 Year
  Sex: Female

DRUGS (4)
  1. AVAPRO [Suspect]
  2. HYDROCHLOROTHIAZIDE [Concomitant]
  3. CLONIDINE [Concomitant]
  4. CARVEDILOL [Concomitant]

REACTIONS (3)
  - Oedema peripheral [Unknown]
  - Blood pressure abnormal [Unknown]
  - Heart rate increased [Unknown]
